FAERS Safety Report 17136824 (Version 2)
Quarter: 2020Q1

REPORT INFORMATION
  Report Type: Spontaneous
  Country: US (occurrence: US)
  Receive Date: 20191210
  Receipt Date: 20200219
  Transmission Date: 20200409
  Serious: No
  Sender: FDA-Public Use
  Company Number: US-ELI_LILLY_AND_COMPANY-US201911011959

PATIENT
  Sex: Female
  Weight: 86.17 kg

DRUGS (5)
  1. EMGALITY [Suspect]
     Active Substance: GALCANEZUMAB-GNLM
     Indication: MIGRAINE PROPHYLAXIS
     Dosage: 240 MG, SINGLE
     Route: 030
     Dates: start: 201909, end: 201909
  2. EMGALITY [Suspect]
     Active Substance: GALCANEZUMAB-GNLM
     Dosage: 120 MG, MONTHLY (1/M)
     Route: 030
  3. TRINTELLIX [Concomitant]
     Active Substance: VORTIOXETINE HYDROBROMIDE
     Dosage: UNK, UNKNOWN
  4. SYNTHROID [Concomitant]
     Active Substance: LEVOTHYROXINE SODIUM
     Dosage: UNK, UNKNOWN
  5. VIT D [Concomitant]
     Active Substance: VITAMIN D NOS
     Dosage: UNK, UNKNOWN

REACTIONS (8)
  - Injection site erythema [Recovered/Resolved]
  - Accident [Unknown]
  - Vomiting [Recovered/Resolved]
  - Injection site pruritus [Recovered/Resolved]
  - Incorrect route of product administration [Unknown]
  - Vertigo [Recovered/Resolved]
  - Injection site swelling [Recovered/Resolved]
  - Injection site pain [Recovered/Resolved]
